FAERS Safety Report 22017987 (Version 3)
Quarter: 2023Q1

REPORT INFORMATION
  Report Type: Spontaneous
  Country: US (occurrence: US)
  Receive Date: 20230221
  Receipt Date: 20230309
  Transmission Date: 20230418
  Serious: No
  Sender: FDA-Public Use
  Company Number: US-Calliditas-2023CAL00116

PATIENT
  Age: 41 Year
  Sex: Female

DRUGS (4)
  1. TARPEYO [Suspect]
     Active Substance: BUDESONIDE
     Indication: IgA nephropathy
     Dosage: 16 MG (4 MG CAPSULES) ONCE DAILY
     Route: 048
     Dates: start: 20220729, end: 20230202
  2. FISH OIL [Concomitant]
     Active Substance: FISH OIL
  3. CHOLESTEROL [Concomitant]
     Active Substance: CHOLESTEROL
  4. VITAMIN B COMPLEX [Concomitant]
     Active Substance: CYANOCOBALAMIN\DEXPANTHENOL\NIACINAMIDE\PYRIDOXINE HYDROCHLORIDE\RIBOFLAVIN 5^-PHOSPHATE SODIUM\THIA

REACTIONS (3)
  - Product dose omission issue [Recovered/Resolved]
  - White blood cell count increased [Unknown]
  - Therapy interrupted [Recovered/Resolved]

NARRATIVE: CASE EVENT DATE: 20230101
